FAERS Safety Report 4423131-9 (Version None)
Quarter: 2004Q3

REPORT INFORMATION
  Report Type: 
  Country: None (occurrence: None)
  Receive Date: 20040811
  Receipt Date: 20040623
  Transmission Date: 20050211
  Serious: Yes (Other)
  Sender: FDA-Public Use
  Company Number: GB-MERCK-0406GBR00210

PATIENT
  Age: 75 Year
  Sex: Male

DRUGS (2)
  1. PROSCAR [Suspect]
     Route: 048
  2. TAMSULOSIN HYDROCHLORIDE [Concomitant]
     Route: 065

REACTIONS (1)
  - VENTRICULAR TACHYCARDIA [None]
